FAERS Safety Report 23524107 (Version 3)
Quarter: 2024Q1

REPORT INFORMATION
  Report Type: Spontaneous
  Country: US (occurrence: US)
  Receive Date: 20240214
  Receipt Date: 20240327
  Transmission Date: 20240410
  Serious: No
  Sender: FDA-Public Use
  Company Number: US-PFIZER INC-PV202400017529

PATIENT
  Age: 80 Year
  Sex: Male
  Weight: 90.72 kg

DRUGS (6)
  1. TALZENNA [Suspect]
     Active Substance: TALAZOPARIB TOSYLATE
     Indication: Prostate cancer
     Dosage: TAKE 1 CAP PO (PER ORAL) QD (ONCE A DAY)
     Route: 048
  2. TALZENNA [Suspect]
     Active Substance: TALAZOPARIB TOSYLATE
     Dosage: 0.5MG AND TAKES IT ONCE A DAY IN THE MORNING BY MOUTH
     Route: 048
  3. LUPRON [Concomitant]
     Active Substance: LEUPROLIDE ACETATE
     Dosage: UNK
  4. ZYTIGA [Concomitant]
     Active Substance: ABIRATERONE ACETATE
     Dosage: UNK
  5. XENDA [Concomitant]
     Dosage: UNK
  6. XTANDI [Concomitant]
     Active Substance: ENZALUTAMIDE
     Dosage: UNK

REACTIONS (8)
  - Product prescribing error [Unknown]
  - Lymphadenopathy [Recovering/Resolving]
  - Condition aggravated [Not Recovered/Not Resolved]
  - Blood test abnormal [Unknown]
  - Headache [Unknown]
  - Sensory disturbance [Unknown]
  - Hot flush [Unknown]
  - Restless legs syndrome [Recovered/Resolved]
